FAERS Safety Report 12983737 (Version 1)
Quarter: 2016Q4

REPORT INFORMATION
  Report Type: Spontaneous
  Country: SA (occurrence: SA)
  Receive Date: 20161129
  Receipt Date: 20161129
  Transmission Date: 20170207
  Serious: Yes (Death)
  Sender: FDA-Public Use
  Company Number: SA-BIOMARINAP-SA-2016-111946

PATIENT
  Age: 7 Year
  Sex: Female

DRUGS (1)
  1. NAGLAZYME [Suspect]
     Active Substance: GALSULFASE
     Indication: MUCOPOLYSACCHARIDOSIS VI
     Dosage: 15 MG, QW
     Route: 042
     Dates: start: 20121218, end: 20161108

REACTIONS (3)
  - Secretion discharge [Not Recovered/Not Resolved]
  - Respiratory failure [Fatal]
  - Tracheostomy malfunction [Not Recovered/Not Resolved]

NARRATIVE: CASE EVENT DATE: 20161108
